FAERS Safety Report 19865853 (Version 1)
Quarter: 2021Q3

REPORT INFORMATION
  Report Type: Spontaneous
  Country: US (occurrence: US)
  Receive Date: 20210922
  Receipt Date: 20210922
  Transmission Date: 20211014
  Serious: Yes (Other)
  Sender: FDA-Public Use
  Company Number: None

PATIENT
  Age: 69 Year
  Sex: Female
  Weight: 54 kg

DRUGS (7)
  1. OMEPREZOLE [Concomitant]
     Active Substance: OMEPRAZOLE
  2. VALSATAN [Concomitant]
  3. LOSARTAN POTASSIUM 25MG, DISPENSE FOR COZAAR [Suspect]
     Active Substance: LOSARTAN POTASSIUM
     Indication: HYPERTENSION
     Dosage: ?          QUANTITY:1 TABLET(S);?
     Route: 048
     Dates: start: 20190801, end: 20210828
  4. ELIQUIS [Concomitant]
     Active Substance: APIXABAN
  5. TIROSINT [Concomitant]
     Active Substance: LEVOTHYROXINE SODIUM
  6. HYDROCHLORTHIAZIDE [Concomitant]
     Active Substance: HYDROCHLOROTHIAZIDE
  7. VITAMIN B12 [Concomitant]
     Active Substance: CYANOCOBALAMIN

REACTIONS (5)
  - Asthenia [None]
  - Dizziness [None]
  - Paraesthesia [None]
  - Swelling face [None]
  - Blood pressure increased [None]

NARRATIVE: CASE EVENT DATE: 20210828
